FAERS Safety Report 8134775-5 (Version None)
Quarter: 2012Q1

REPORT INFORMATION
  Report Type: 
  Country: None (occurrence: None)
  Receive Date: 20120214
  Receipt Date: 20110817
  Transmission Date: 20120608
  Serious: Yes (Life-Threatening, Hospitalization)
  Sender: FDA-Public Use
  Company Number: ENDO PHARMACEUTICALS INC.-MEPE20110009

PATIENT
  Age: 16 Year
  Sex: Male

DRUGS (2)
  1. MEPERITAB TABLETS [Suspect]
     Indication: PAIN
     Dosage: UNK
     Route: 065
  2. VALPROATE SODIUM [Suspect]
     Indication: GRAND MAL CONVULSION
     Dosage: UNK
     Route: 065

REACTIONS (8)
  - DIZZINESS [None]
  - SINUS BRADYCARDIA [None]
  - PULSELESS ELECTRICAL ACTIVITY [None]
  - CHEST DISCOMFORT [None]
  - VENTRICULAR FIBRILLATION [None]
  - ELECTROCARDIOGRAM QT PROLONGED [None]
  - LOSS OF CONSCIOUSNESS [None]
  - VENTRICULAR TACHYCARDIA [None]
